FAERS Safety Report 12391050 (Version 5)
Quarter: 2017Q4

REPORT INFORMATION
  Report Type: Report from Study
  Country: US (occurrence: US)
  Receive Date: 20160520
  Receipt Date: 20171107
  Transmission Date: 20180320
  Serious: Yes (Other)
  Sender: FDA-Public Use
  Company Number: US-ACTELION-A-NJ2015-128299

PATIENT
  Age: 73 Year
  Sex: Female
  Weight: 31.29 kg

DRUGS (2)
  1. PROCRIT [Concomitant]
     Active Substance: ERYTHROPOIETIN
  2. OPSUMIT [Suspect]
     Active Substance: MACITENTAN
     Indication: PULMONARY ARTERIAL HYPERTENSION
     Dosage: 10 MG, QD
     Route: 048
     Dates: start: 20151102

REACTIONS (14)
  - Haemoglobin decreased [Recovering/Resolving]
  - Gait disturbance [Unknown]
  - Nasopharyngitis [Unknown]
  - Blood pressure increased [Unknown]
  - Dizziness [Unknown]
  - Heart rate decreased [Unknown]
  - Joint injury [Unknown]
  - Labile blood pressure [Unknown]
  - Anaemia [Unknown]
  - Tremor [Unknown]
  - Dizziness postural [Unknown]
  - Balance disorder [Unknown]
  - Peripheral swelling [Unknown]
  - Syncope [Unknown]

NARRATIVE: CASE EVENT DATE: 201603
